FAERS Safety Report 17016212 (Version 1)
Quarter: 2019Q4

REPORT INFORMATION
  Report Type: Spontaneous
  Country: US (occurrence: US)
  Receive Date: 20191109
  Receipt Date: 20191109
  Transmission Date: 20200122
  Serious: Yes (Hospitalization)
  Sender: FDA-Public Use
  Company Number: None

PATIENT
  Age: 65 Year
  Sex: Male
  Weight: 67.5 kg

DRUGS (9)
  1. ESCITALOPRAM [Concomitant]
     Active Substance: ESCITALOPRAM OXALATE
  2. LOSARTAN. [Concomitant]
     Active Substance: LOSARTAN
  3. PREDNISONE. [Concomitant]
     Active Substance: PREDNISONE
  4. AMLODIPINE [Concomitant]
     Active Substance: AMLODIPINE BESYLATE
  5. REMICADE [Suspect]
     Active Substance: INFLIXIMAB
     Indication: CROHN^S DISEASE
     Route: 042
     Dates: start: 20191108, end: 20191108
  6. FOLIC ACID. [Concomitant]
     Active Substance: FOLIC ACID
  7. ENTYVIO [Concomitant]
     Active Substance: VEDOLIZUMAB
  8. SIMVASTATIN. [Concomitant]
     Active Substance: SIMVASTATIN
  9. VITAMIN D [Concomitant]
     Active Substance: VITAMIN D NOS

REACTIONS (10)
  - Flushing [None]
  - Blood pressure decreased [None]
  - Feeling hot [None]
  - Visual impairment [None]
  - Pain [None]
  - Tremor [None]
  - Infusion related reaction [None]
  - Chest discomfort [None]
  - Abdominal pain upper [None]
  - Dizziness [None]

NARRATIVE: CASE EVENT DATE: 20191108
